FAERS Safety Report 6898102-3 (Version None)
Quarter: 2010Q3

REPORT INFORMATION
  Report Type: 
  Country: None (occurrence: None)
  Receive Date: 20100802
  Receipt Date: 20070901
  Transmission Date: 20110219
  Serious: No
  Sender: FDA-Public Use
  Company Number: US-PFIZER INC-2007043826

PATIENT
  Sex: Female
  Weight: 72.6 kg

DRUGS (1)
  1. LYRICA [Suspect]
     Indication: PAIN OF SKIN
     Route: 048
     Dates: start: 20070115

REACTIONS (2)
  - INTENTIONAL DRUG MISUSE [None]
  - PAIN [None]
